FAERS Safety Report 5118968-7 (Version None)
Quarter: 2006Q3

REPORT INFORMATION
  Report Type: 
  Country: None (occurrence: None)
  Receive Date: 20060927
  Receipt Date: 20060913
  Transmission Date: 20061208
  Serious: Yes (Life-Threatening, Hospitalization, Disabling)
  Sender: FDA-Public Use
  Company Number: 229811

PATIENT
  Age: 55 Year
  Sex: Female
  Weight: 55.1 kg

DRUGS (10)
  1. RITUXIMAB [Suspect]
     Indication: MULTIPLE SCLEROSIS
     Dosage: 2 G, DAYS 1 + 15, INTRAVENOUS
     Route: 042
     Dates: start: 20050818
  2. BACLOFEN [Concomitant]
  3. OXYCONTIN [Concomitant]
  4. MELOXICAM (MELOXICAM) [Concomitant]
  5. PAXIL [Concomitant]
  6. AMITRIPTYLINE HCL [Concomitant]
  7. FENTANYL (FENTANYL CITRATE) [Concomitant]
  8. FLOVENT [Concomitant]
  9. VENTOLIN (ALBUTEROL/ALBUTEROL SULFATE) [Concomitant]
  10. ATROVENT [Concomitant]

REACTIONS (2)
  - CHRONIC OBSTRUCTIVE PULMONARY DISEASE [None]
  - RESPIRATORY FAILURE [None]
